FAERS Safety Report 17562185 (Version 1)
Quarter: 2020Q1

REPORT INFORMATION
  Report Type: Spontaneous
  Country: TR (occurrence: TR)
  Receive Date: 20200319
  Receipt Date: 20200319
  Transmission Date: 20200409
  Serious: Yes (Other)
  Sender: FDA-Public Use
  Company Number: TR-ABBVIE-20K-161-3328306-00

PATIENT
  Age: 86 Year
  Sex: Female

DRUGS (4)
  1. DILTIZEM [Concomitant]
     Indication: CEREBROVASCULAR DISORDER
  2. KARUM [Concomitant]
     Indication: CEREBROVASCULAR DISORDER
  3. MAVIRET [Suspect]
     Active Substance: GLECAPREVIR\PIBRENTASVIR
     Indication: CHRONIC HEPATITIS C
     Dosage: 100 MG /40 MG, FREQUENCY: 1X3
     Route: 048
     Dates: start: 20200304
  4. DILTIZEM [Concomitant]
     Indication: HYPERTENSION

REACTIONS (2)
  - Hypersensitivity [Not Recovered/Not Resolved]
  - Pruritus [Not Recovered/Not Resolved]

NARRATIVE: CASE EVENT DATE: 20200305
